FAERS Safety Report 7465362-X (Version None)
Quarter: 2011Q2

REPORT INFORMATION
  Report Type: 
  Country: None (occurrence: None)
  Receive Date: 20110509
  Receipt Date: 20110505
  Transmission Date: 20111010
  Serious: Yes (Hospitalization, Other)
  Sender: FDA-Public Use
  Company Number: US-BRISTOL-MYERS SQUIBB COMPANY-15644586

PATIENT
  Age: 34 Year
  Sex: Female

DRUGS (18)
  1. YERVOY [Suspect]
     Indication: MALIGNANT MELANOMA
     Dosage: 3MG/KG
     Route: 042
     Dates: start: 20110324
  2. LORAZEPAM [Concomitant]
     Indication: ANXIETY
     Route: 048
  3. METOPROLOL [Concomitant]
     Route: 048
  4. PHENYTOIN [Concomitant]
     Dosage: 3 TABLETS ALSO 200MG
     Route: 048
  5. ACETAMINOPHEN [Concomitant]
     Route: 048
  6. LORAZEPAM [Concomitant]
     Indication: CONVULSION
     Route: 060
  7. FENTANYL [Concomitant]
  8. DIFLUCAN [Concomitant]
     Route: 048
  9. DILANTIN [Concomitant]
     Dosage: LOADING DOSE 1GM
     Route: 042
     Dates: start: 20110327
  10. ZOFRAN [Concomitant]
     Route: 060
  11. MIRALAX [Concomitant]
     Route: 048
  12. ACETAMINOPHEN [Concomitant]
     Route: 048
  13. AMLODIPINE BESYLATE [Concomitant]
     Route: 048
  14. DECADRON [Concomitant]
     Route: 042
     Dates: start: 20110327
  15. DRONABINOL [Concomitant]
     Route: 048
  16. DECADRON [Concomitant]
  17. ALPRAZOLAM [Concomitant]
     Indication: ANXIETY
     Route: 048
  18. PROCHLORPERAZINE TAB [Concomitant]
     Route: 048

REACTIONS (1)
  - CONVULSION [None]
